FAERS Safety Report 14383606 (Version 1)
Quarter: 2018Q1

REPORT INFORMATION
  Report Type: Spontaneous
  Country: US (occurrence: US)
  Receive Date: 20180115
  Receipt Date: 20180115
  Transmission Date: 20180509
  Serious: No
  Sender: FDA-Public Use
  Company Number: US-AMGEN-USASP2018004300

PATIENT
  Age: 58 Year
  Sex: Female

DRUGS (1)
  1. ENBREL [Suspect]
     Active Substance: ETANERCEPT
     Indication: RHEUMATOID ARTHRITIS
     Dosage: 50 MG, QWK
     Route: 058
     Dates: start: 2011

REACTIONS (5)
  - Sinusitis [Unknown]
  - Influenza [Unknown]
  - Epistaxis [Unknown]
  - Bronchitis [Unknown]
  - Acne [Unknown]

NARRATIVE: CASE EVENT DATE: 201801
